FAERS Safety Report 23870844 (Version 1)
Quarter: 2024Q2

REPORT INFORMATION
  Report Type: Report from Study
  Country: CH (occurrence: CH)
  Receive Date: 20240518
  Receipt Date: 20240518
  Transmission Date: 20240716
  Serious: Yes (Death)
  Sender: FDA-Public Use
  Company Number: CH-ABBVIE-5759881

PATIENT
  Age: 71 Year
  Sex: Female

DRUGS (2)
  1. CARBIDOPA\LEVODOPA [Suspect]
     Active Substance: CARBIDOPA\LEVODOPA
     Indication: Parkinson^s disease
     Dosage: MD: 8.0 ML, CRD: 3.8 ML/H, ED: 1.5 ML, CRN: 2.0 ML/H/FREQUENCY TEXT: 24H THERAPY
     Route: 050
     Dates: start: 20240221, end: 20240509
  2. CARBIDOPA\LEVODOPA [Suspect]
     Active Substance: CARBIDOPA\LEVODOPA
     Route: 050
     Dates: start: 20150804

REACTIONS (1)
  - Death [Fatal]

NARRATIVE: CASE EVENT DATE: 20240509
